FAERS Safety Report 4834223-4 (Version None)
Quarter: 2005Q4

REPORT INFORMATION
  Report Type: 
  Country: None (occurrence: None)
  Receive Date: 20051122
  Receipt Date: 20051114
  Transmission Date: 20060501
  Serious: Yes (Other)
  Sender: FDA-Public Use
  Company Number: US-BRISTOL-MYERS SQUIBB COMPANY-13181573

PATIENT
  Age: 79 Year

DRUGS (1)
  1. CEFEPIME HCL [Suspect]
     Indication: URINARY TRACT INFECTION

REACTIONS (1)
  - STATUS EPILEPTICUS [None]
